FAERS Safety Report 13228832 (Version 1)
Quarter: 2017Q1

REPORT INFORMATION
  Report Type: Spontaneous
  Country: US (occurrence: US)
  Receive Date: 20170213
  Receipt Date: 20170213
  Transmission Date: 20170428
  Serious: Yes (Hospitalization)
  Sender: FDA-Public Use
  Company Number: US-ASTRAZENECA-2017SE14362

PATIENT
  Age: 44 Year
  Sex: Female
  Weight: 96.2 kg

DRUGS (9)
  1. NEURONTIN [Concomitant]
     Active Substance: GABAPENTIN
     Indication: NERVE INJURY
     Route: 048
     Dates: start: 2004
  2. CELEBREX [Concomitant]
     Active Substance: CELECOXIB
     Indication: ARTHRITIS
     Route: 048
     Dates: start: 2004
  3. METFORMIN [Concomitant]
     Active Substance: METFORMIN HYDROCHLORIDE
     Dosage: DAILY
     Route: 048
  4. LISINOPRIL. [Suspect]
     Active Substance: LISINOPRIL
     Indication: BLOOD PRESSURE ABNORMAL
     Route: 048
  5. NORVASC [Concomitant]
     Active Substance: AMLODIPINE BESYLATE
     Indication: BLOOD PRESSURE ABNORMAL
     Route: 048
  6. KOMBIGLYZE XR [Suspect]
     Active Substance: METFORMIN HYDROCHLORIDE\SAXAGLIPTIN HYDROCHLORIDE
     Indication: TYPE 2 DIABETES MELLITUS
     Dosage: 5 MG/1000 MG, DAILY
     Route: 048
  7. LOPRESSOR [Concomitant]
     Active Substance: METOPROLOL TARTRATE
     Indication: HEART RATE ABNORMAL
     Dosage: 5
     Route: 048
     Dates: start: 2008
  8. NEURONTIN [Concomitant]
     Active Substance: GABAPENTIN
     Indication: NEUROPATHY PERIPHERAL
     Route: 048
     Dates: start: 2004
  9. CELEBREX [Concomitant]
     Active Substance: CELECOXIB
     Indication: PELVIC PAIN
     Route: 048
     Dates: start: 2004

REACTIONS (13)
  - Alopecia [Not Recovered/Not Resolved]
  - Atrial fibrillation [Recovered/Resolved]
  - Diabetes mellitus inadequate control [Not Recovered/Not Resolved]
  - Dry skin [Not Recovered/Not Resolved]
  - Vomiting [Not Recovered/Not Resolved]
  - Abdominal pain upper [Not Recovered/Not Resolved]
  - Product packaging quantity issue [Unknown]
  - Glycosylated haemoglobin increased [Unknown]
  - Thirst [Not Recovered/Not Resolved]
  - Visual acuity reduced [Not Recovered/Not Resolved]
  - Diplopia [Not Recovered/Not Resolved]
  - Nausea [Not Recovered/Not Resolved]
  - Vision blurred [Not Recovered/Not Resolved]

NARRATIVE: CASE EVENT DATE: 2008
